FAERS Safety Report 8784884 (Version 1)
Quarter: 2012Q4

REPORT INFORMATION
  Report Type: Spontaneous
  Country: US (occurrence: None)
  Receive Date: 20120907
  Receipt Date: 20120907
  Transmission Date: 20130627
  Serious: No
  Sender: FDA-Public Use
  Company Number: None

PATIENT
  Age: 21 Year
  Sex: Male

DRUGS (1)
  1. ZYPREXA [Suspect]
     Indication: MENTAL DISORDER
     Route: 048
     Dates: start: 201203

REACTIONS (3)
  - Tremor [None]
  - Musculoskeletal stiffness [None]
  - Extrapyramidal disorder [None]
